FAERS Safety Report 8769800 (Version 1)
Quarter: 2012Q4

REPORT INFORMATION
  Report Type: 
  Country: US (occurrence: US)
  Receive Date: 20120906
  Receipt Date: 20120906
  Transmission Date: 20130627
  Serious: No
  Sender: FDA-Public Use
  Company Number: US-009507513-1208USA003518

PATIENT

DRUGS (2)
  1. REBETOL [Suspect]
     Indication: HEPATITIS C
     Dosage: UNK
     Dates: start: 20070803, end: 20071102
  2. REBETOL [Suspect]
     Dosage: UNK
     Dates: start: 20120801

REACTIONS (2)
  - Amenorrhoea [Unknown]
  - No therapeutic response [Unknown]
